FAERS Safety Report 19619958 (Version 1)
Quarter: 2021Q3

REPORT INFORMATION
  Report Type: Spontaneous
  Country: US (occurrence: US)
  Receive Date: 20210727
  Receipt Date: 20210727
  Transmission Date: 20211014
  Serious: Yes (Disabling)
  Sender: FDA-Public Use
  Company Number: None

PATIENT
  Sex: Male

DRUGS (2)
  1. KRATOM [Suspect]
     Active Substance: HERBALS\MITRAGYNINE
     Indication: PAIN
  2. KRATOM [Suspect]
     Active Substance: HERBALS\MITRAGYNINE
     Indication: ANXIETY

REACTIONS (7)
  - Anxiety [None]
  - Mood swings [None]
  - Dependence [None]
  - Decreased appetite [None]
  - Agitation [None]
  - Withdrawal syndrome [None]
  - Personality change [None]
